FAERS Safety Report 7650016-7 (Version None)
Quarter: 2011Q3

REPORT INFORMATION
  Report Type: 
  Country: None (occurrence: None)
  Receive Date: 20110802
  Receipt Date: 20110726
  Transmission Date: 20111222
  Serious: Yes (Other)
  Sender: FDA-Public Use
  Company Number: US-JNJFOC-20110712166

PATIENT
  Age: 85 Year
  Sex: Female
  Weight: 57.15 kg

DRUGS (3)
  1. PEPCID AC [Suspect]
     Indication: GASTROOESOPHAGEAL REFLUX DISEASE
     Route: 048
     Dates: start: 20110719, end: 20110724
  2. PEPCID AC [Suspect]
     Route: 048
  3. ACID REFLUX MEDICATION [Concomitant]
     Indication: GASTROOESOPHAGEAL REFLUX DISEASE

REACTIONS (5)
  - MONOPLEGIA [None]
  - MUSCULOSKELETAL PAIN [None]
  - ARTHRALGIA [None]
  - INFLUENZA LIKE ILLNESS [None]
  - INCORRECT DOSE ADMINISTERED [None]
